FAERS Safety Report 4659329-4 (Version None)
Quarter: 2005Q2

REPORT INFORMATION
  Report Type: 
  Country: None (occurrence: None)
  Receive Date: 20050502
  Receipt Date: 20050314
  Transmission Date: 20051028
  Serious: No
  Sender: FDA-Public Use
  Company Number: 200512043US

PATIENT
  Age: 37 Year
  Sex: Female

DRUGS (3)
  1. KETEK [Suspect]
     Indication: SINUSITIS
     Dosage: 800 MG/DAY
  2. PSEUDOEPHEDRINE HYDROCHLORIDE (SUDAFED) [Concomitant]
  3. ADVIL [Concomitant]

REACTIONS (1)
  - DYSGEUSIA [None]
